FAERS Safety Report 10392772 (Version 44)
Quarter: 2018Q2

REPORT INFORMATION
  Report Type: Report from Study
  Country: CA (occurrence: CA)
  Receive Date: 20140819
  Receipt Date: 20180629
  Transmission Date: 20180711
  Serious: Yes (Hospitalization, Other)
  Sender: FDA-Public Use
  Company Number: CA-ROCHE-1448798

PATIENT
  Age: 74 Year
  Sex: Female
  Weight: 72 kg

DRUGS (20)
  1. KETOPROFEN. [Concomitant]
     Active Substance: KETOPROFEN
  2. FOLIC ACID. [Concomitant]
     Active Substance: FOLIC ACID
  3. PREDNISONE. [Suspect]
     Active Substance: PREDNISONE
     Indication: PRODUCT USED FOR UNKNOWN INDICATION
     Route: 065
  4. TYLENOL WITH CODEINE [Concomitant]
     Active Substance: ACETAMINOPHEN\CODEINE PHOSPHATE
  5. ACTEMRA [Suspect]
     Active Substance: TOCILIZUMAB
     Indication: RHEUMATOID ARTHRITIS
     Route: 042
     Dates: start: 20150205
  6. ACLASTA [Concomitant]
     Active Substance: ZOLEDRONIC ACID
  7. SYNTHROID [Concomitant]
     Active Substance: LEVOTHYROXINE SODIUM
  8. KETOPROFEN. [Concomitant]
     Active Substance: KETOPROFEN
  9. ACTEMRA [Suspect]
     Active Substance: TOCILIZUMAB
     Route: 042
     Dates: start: 20150309
  10. RITUXAN [Suspect]
     Active Substance: RITUXIMAB
     Indication: RHEUMATOID ARTHRITIS
     Route: 042
     Dates: start: 20100311, end: 20100324
  11. APO-AMLODIPINE [Suspect]
     Active Substance: AMLODIPINE BESYLATE
     Indication: HYPERTENSION
     Route: 065
     Dates: end: 20150501
  12. EPIPEN [Concomitant]
     Active Substance: EPINEPHRINE
  13. OXYCOCET [Concomitant]
     Active Substance: ACETAMINOPHEN\OXYCODONE HYDROCHLORIDE
  14. ACTEMRA [Suspect]
     Active Substance: TOCILIZUMAB
     Route: 042
     Dates: start: 20170223
  15. XELJANZ [Suspect]
     Active Substance: TOFACITINIB CITRATE
     Indication: RHEUMATOID ARTHRITIS
     Route: 065
     Dates: start: 20141226
  16. NAPROSYN [Suspect]
     Active Substance: NAPROXEN
     Indication: PRODUCT USED FOR UNKNOWN INDICATION
     Route: 065
  17. OMEGA 3 [Concomitant]
     Active Substance: OMEGA-3 FATTY ACIDS
  18. CONJUGATED LINOLEIC ACID [Concomitant]
     Active Substance: LINOLEIC ACID, CONJUGATED
  19. COENZYME Q-10 [Concomitant]
  20. PANTOPRAZOLE [Concomitant]
     Active Substance: PANTOPRAZOLE

REACTIONS (43)
  - Weight decreased [Unknown]
  - Alopecia [Unknown]
  - Pain in extremity [Recovering/Resolving]
  - Asthenia [Unknown]
  - Dizziness [Unknown]
  - Blood pressure systolic decreased [Unknown]
  - Hypertension [Unknown]
  - Clostridium difficile infection [Unknown]
  - Palpitations [Unknown]
  - Dyspnoea [Unknown]
  - Gingival disorder [Unknown]
  - Eye infection [Recovering/Resolving]
  - Staphylococcal infection [Not Recovered/Not Resolved]
  - Arthralgia [Not Recovered/Not Resolved]
  - Rhinorrhoea [Recovering/Resolving]
  - Nasopharyngitis [Not Recovered/Not Resolved]
  - Decreased appetite [Unknown]
  - Hand deformity [Unknown]
  - Weight increased [Recovered/Resolved]
  - Hypoaesthesia oral [Unknown]
  - Fall [Unknown]
  - Drug ineffective [Unknown]
  - Dizziness [Unknown]
  - Incorrect dose administered [Unknown]
  - Oropharyngeal pain [Recovering/Resolving]
  - Blood pressure increased [Unknown]
  - Blood pressure increased [Unknown]
  - Fracture [Unknown]
  - Drug hypersensitivity [Unknown]
  - Cystitis [Recovered/Resolved]
  - Weight decreased [Not Recovered/Not Resolved]
  - Urinary tract infection [Recovered/Resolved]
  - Scratch [Unknown]
  - Decubitus ulcer [Unknown]
  - Cerebrovascular accident [Unknown]
  - Fall [Unknown]
  - Lung neoplasm [Unknown]
  - Pain [Not Recovered/Not Resolved]
  - Musculoskeletal pain [Recovering/Resolving]
  - Cerebrovascular accident [Unknown]
  - Rash [Unknown]
  - Arthritis infective [Recovered/Resolved]
  - Contusion [Unknown]

NARRATIVE: CASE EVENT DATE: 2015
